FAERS Safety Report 22289910 (Version 1)
Quarter: 2023Q2

REPORT INFORMATION
  Report Type: Spontaneous
  Country: US (occurrence: US)
  Receive Date: 20230505
  Receipt Date: 20230505
  Transmission Date: 20230721
  Serious: Yes (Other)
  Sender: FDA-Public Use
  Company Number: US-AMGEN-USASP2023075626

PATIENT
  Sex: Female

DRUGS (3)
  1. REPATHA [Suspect]
     Active Substance: EVOLOCUMAB
     Indication: Product used for unknown indication
     Dosage: 140 MILLIGRAM, Q2WK
     Route: 065
  2. BYDUREON [Concomitant]
     Active Substance: EXENATIDE
     Dosage: 3 MILLIGRAM
  3. BYDUREON [Concomitant]
     Active Substance: EXENATIDE
     Dosage: 2 MILLIGRAM

REACTIONS (1)
  - Diabetes mellitus [Unknown]
